FAERS Safety Report 24200900 (Version 1)
Quarter: 2024Q3

REPORT INFORMATION
  Report Type: Spontaneous
  Country: DE (occurrence: DE)
  Receive Date: 20240812
  Receipt Date: 20240812
  Transmission Date: 20241016
  Serious: Yes (Other)
  Sender: DR REDDYS
  Company Number: None

PATIENT
  Age: 37 Year
  Sex: Male
  Weight: 65 kg

DRUGS (6)
  1. PREGABALIN [Suspect]
     Active Substance: PREGABALIN
     Indication: Polyneuropathy
     Dosage: 50MG IN THE MORNING?BETA 50MG
     Route: 048
     Dates: start: 20130101, end: 20240701
  2. PREGABALIN [Suspect]
     Active Substance: PREGABALIN
     Indication: Small fibre neuropathy
     Dosage: 100MG LUNCH/EVENING?BETA 100MG
     Route: 048
     Dates: start: 20130101, end: 20240701
  3. OXYCODONE HYDROCHLORIDE [Suspect]
     Active Substance: OXYCODONE HYDROCHLORIDE
     Indication: Polyneuropathy
     Dosage: 40MG IN THE MORNING??40 MG EXTENDED-RELEASE TABLETS
     Route: 048
     Dates: start: 20230115, end: 20240701
  4. OXYCODONE HYDROCHLORIDE [Suspect]
     Active Substance: OXYCODONE HYDROCHLORIDE
     Indication: Small fibre neuropathy
  5. NALOXONE HYDROCHLORIDE\OXYCODONE HYDROCHLORIDE [Suspect]
     Active Substance: NALOXONE HYDROCHLORIDE\OXYCODONE HYDROCHLORIDE
     Indication: Polyneuropathy
     Dosage: 20MG IN THE EVENING?HEUMANN 20 MG/10 MG PROLONGED-RELEASE TABLETS
     Route: 048
     Dates: start: 20230115, end: 20240701
  6. NALOXONE HYDROCHLORIDE\OXYCODONE HYDROCHLORIDE [Suspect]
     Active Substance: NALOXONE HYDROCHLORIDE\OXYCODONE HYDROCHLORIDE
     Indication: Small fibre neuropathy

REACTIONS (21)
  - Polyneuropathy [Recovered/Resolved with Sequelae]
  - Productive cough [Recovered/Resolved]
  - Feeling cold [Recovering/Resolving]
  - Mobility decreased [Not Recovered/Not Resolved]
  - Fatigue [Not Recovered/Not Resolved]
  - Gastrointestinal pain [Not Recovered/Not Resolved]
  - Decreased appetite [Not Recovered/Not Resolved]
  - Hypophagia [Not Recovered/Not Resolved]
  - Dysuria [Recovering/Resolving]
  - Hyperhidrosis [Recovering/Resolving]
  - Skin erosion [Recovered/Resolved]
  - Night sweats [Recovering/Resolving]
  - Skin weeping [Recovered/Resolved]
  - Photosensitivity reaction [Recovering/Resolving]
  - Dermatitis acneiform [Recovered/Resolved]
  - Dermatitis [Recovered/Resolved]
  - Hyperacusis [Recovering/Resolving]
  - Dizziness [Recovering/Resolving]
  - Pruritus [Recovered/Resolved]
  - Arthralgia [Recovering/Resolving]
  - Condition aggravated [Recovered/Resolved with Sequelae]

NARRATIVE: CASE EVENT DATE: 20230115
